FAERS Safety Report 25744024 (Version 4)
Quarter: 2025Q4

REPORT INFORMATION
  Report Type: Report from Study
  Country: EU (occurrence: EU)
  Receive Date: 20250831
  Receipt Date: 20251211
  Transmission Date: 20260118
  Serious: Yes (Hospitalization)
  Sender: ABBVIE
  Company Number: EU-ABBVIE-6345497

PATIENT
  Age: 70 Year
  Sex: Male

DRUGS (5)
  1. FOSCARBIDOPA\FOSLEVODOPA [Suspect]
     Active Substance: FOSCARBIDOPA\FOSLEVODOPA
     Indication: Parkinson^s disease
     Dosage: LAST ADMIN DATE: JUN 2025,  ?CRN: 0.20 ML/H, CR: 0.22 ML/H, CRH: 0.24 ML/H, ED 0.20 ML
     Route: 058
     Dates: start: 20250623
  2. FOSCARBIDOPA\FOSLEVODOPA [Suspect]
     Active Substance: FOSCARBIDOPA\FOSLEVODOPA
     Dosage: DOSE REDUCED, CRN: 0.20 ML/H, CR: 0.21 ML/H, CRH: 0.24 ML/H, ED: 0.20 ML?LAST ADMIN DATE: 2025
     Route: 058
     Dates: start: 202506
  3. FOSCARBIDOPA\FOSLEVODOPA [Suspect]
     Active Substance: FOSCARBIDOPA\FOSLEVODOPA
     Dosage: CRN: 0.22 ML/H, CR: 0.24 ML/H, CRH: 0.26 ML/H, ED 0.20 ML (BLOCKING TIME 1:00 H),
     Route: 058
     Dates: start: 2025, end: 2025
  4. FOSCARBIDOPA\FOSLEVODOPA [Suspect]
     Active Substance: FOSCARBIDOPA\FOSLEVODOPA
     Dosage: 0,22 ML/H; CR:0.24ML; CRH: 0,36 ML/H; ED: 0,20 ML.
     Route: 058
     Dates: start: 2025, end: 2025
  5. FOSCARBIDOPA\FOSLEVODOPA [Suspect]
     Active Substance: FOSCARBIDOPA\FOSLEVODOPA
     Dosage: CRN 0,28 ML/H, CR 0,30 ML/H, CRH 0,32 ML/H.
     Route: 058
     Dates: start: 20250922

REACTIONS (7)
  - Abdominal pain [Not Recovered/Not Resolved]
  - Constipation [Not Recovered/Not Resolved]
  - Infusion site induration [Not Recovered/Not Resolved]
  - Infusion site vesicles [Not Recovered/Not Resolved]
  - On and off phenomenon [Not Recovered/Not Resolved]
  - Dyskinesia [Not Recovered/Not Resolved]
  - Infusion site inflammation [Not Recovered/Not Resolved]

NARRATIVE: CASE EVENT DATE: 20250101
